FAERS Safety Report 6207002-3 (Version None)
Quarter: 2009Q2

REPORT INFORMATION
  Report Type: 
  Country: None (occurrence: None)
  Receive Date: 20090528
  Receipt Date: 20090119
  Transmission Date: 20091009
  Serious: Yes (Hospitalization, Other)
  Sender: FDA-Public Use
  Company Number: US-PFIZER INC-2009157726

PATIENT
  Age: 77 Year
  Sex: Male

DRUGS (1)
  1. METHYLPREDNISOLONE AND METHYLPREDNISOLONE ACETATE AND METHYLPREDNISOLO [Suspect]
     Indication: SPINAL COLUMN STENOSIS
     Dosage: 80 MG, UNK
     Route: 008

REACTIONS (1)
  - OSTEOMYELITIS [None]
